FAERS Safety Report 18402701 (Version 1)
Quarter: 2020Q4

REPORT INFORMATION
  Report Type: Spontaneous
  Country: JP (occurrence: JP)
  Receive Date: 20201020
  Receipt Date: 20201020
  Transmission Date: 20210114
  Serious: Yes (Hospitalization)
  Sender: FDA-Public Use
  Company Number: JP-TEVA-2020-JP-1839495

PATIENT
  Age: 48 Year
  Sex: Male

DRUGS (9)
  1. HALOPERIDOL. [Suspect]
     Active Substance: HALOPERIDOL
     Dosage: 6 MILLIGRAM DAILY;
     Route: 065
  2. CLOZAPINE. [Suspect]
     Active Substance: CLOZAPINE
     Indication: SCHIZOPHRENIA
     Dosage: 12.5 MILLIGRAM DAILY; INCREASED BY 12.5 OR 25 MG/DAY EVERY 6-7 DAYS
     Route: 065
  3. LITHIUM. [Suspect]
     Active Substance: LITHIUM
     Indication: NEUTROPENIA
     Dosage: 400 MILLIGRAM DAILY;
     Route: 065
  4. RISPERIDONE. [Suspect]
     Active Substance: RISPERIDONE
     Indication: SCHIZOPHRENIA
     Route: 065
  5. PALIPERIDONE. [Suspect]
     Active Substance: PALIPERIDONE
     Indication: SCHIZOPHRENIA
     Dosage: 6 MILLIGRAM DAILY;
     Route: 065
  6. HALOPERIDOL. [Suspect]
     Active Substance: HALOPERIDOL
     Indication: SCHIZOPHRENIA
     Dosage: 3 MILLIGRAM DAILY;
     Route: 065
  7. ARIPIPRAZOLE. [Suspect]
     Active Substance: ARIPIPRAZOLE
     Indication: SCHIZOPHRENIA
     Dosage: 30 MILLIGRAM DAILY;
     Route: 065
  8. BREXPIPRAZOLE [Suspect]
     Active Substance: BREXPIPRAZOLE
     Indication: SCHIZOPHRENIA
     Dosage: 2 MILLIGRAM DAILY;
     Route: 065
  9. LEVOMEPROMAZINE [Suspect]
     Active Substance: LEVOMEPROMAZINE
     Indication: SCHIZOPHRENIA
     Dosage: 25 MILLIGRAM DAILY;
     Route: 065

REACTIONS (8)
  - Eosinophilia [Recovered/Resolved]
  - Rebound effect [Recovered/Resolved]
  - Pericardial effusion [Unknown]
  - Hepatitis [Unknown]
  - Pleural effusion [Unknown]
  - Liver injury [Unknown]
  - Drug ineffective [Unknown]
  - Bronchitis [Unknown]
